FAERS Safety Report 4639739-1 (Version None)
Quarter: 2005Q1

REPORT INFORMATION
  Report Type: 
  Country: None (occurrence: None)
  Receive Date: 20050328
  Receipt Date: 20050121
  Transmission Date: 20050727
  Serious: No
  Sender: FDA-Public Use
  Company Number: USA050189141

PATIENT
  Age: 38 Year
  Sex: Male

DRUGS (1)
  1. STRATTERA [Suspect]
     Dosage: 80 MG
     Dates: start: 20041224

REACTIONS (3)
  - LIBIDO DECREASED [None]
  - TESTICULAR PAIN [None]
  - URINARY HESITATION [None]
